FAERS Safety Report 15503898 (Version 1)
Quarter: 2018Q4

REPORT INFORMATION
  Report Type: Spontaneous
  Country: US (occurrence: US)
  Receive Date: 20181016
  Receipt Date: 20181016
  Transmission Date: 20190205
  Serious: No
  Sender: FDA-Public Use
  Company Number: US-AMGEN INC.-USASP2018127095

PATIENT
  Age: 52 Year
  Sex: Male

DRUGS (19)
  1. LAMICTAL [Concomitant]
     Active Substance: LAMOTRIGINE
  2. GEODON [Concomitant]
     Active Substance: ZIPRASIDONE HYDROCHLORIDE\ZIPRASIDONE MESYLATE
  3. TIZANIDINE. [Concomitant]
     Active Substance: TIZANIDINE
  4. AIMOVIG [Suspect]
     Active Substance: ERENUMAB-AOOE
     Dosage: 140 MG, QMO
     Route: 065
     Dates: start: 20180907
  5. COREG [Concomitant]
     Active Substance: CARVEDILOL
  6. TOPAMAX [Concomitant]
     Active Substance: TOPIRAMATE
  7. DIHYDROERGOTAMINE [Concomitant]
     Active Substance: DIHYDROERGOTAMINE
  8. OMEPRAZOLE. [Concomitant]
     Active Substance: OMEPRAZOLE
  9. AIMOVIG [Suspect]
     Active Substance: ERENUMAB-AOOE
     Indication: MIGRAINE PROPHYLAXIS
     Dosage: 140 MG, QMO
     Route: 065
     Dates: start: 2018
  10. BOTOX [Concomitant]
     Active Substance: ONABOTULINUMTOXINA
  11. TORADOL [Concomitant]
     Active Substance: KETOROLAC TROMETHAMINE
  12. MELATONIN [Concomitant]
     Active Substance: MELATONIN
  13. NAMENDA [Concomitant]
     Active Substance: MEMANTINE HYDROCHLORIDE
  14. VENTOLIN [Concomitant]
     Active Substance: ALBUTEROL SULFATE
  15. KLONOPIN [Concomitant]
     Active Substance: CLONAZEPAM
  16. ADVAIR HFA [Concomitant]
     Active Substance: FLUTICASONE PROPIONATE\SALMETEROL XINAFOATE
  17. ASPIRIN. [Concomitant]
     Active Substance: ASPIRIN
  18. TRAMADOL. [Concomitant]
     Active Substance: TRAMADOL
  19. ZANTAC [Concomitant]
     Active Substance: RANITIDINE HYDROCHLORIDE

REACTIONS (1)
  - Paraesthesia [Unknown]

NARRATIVE: CASE EVENT DATE: 20180908
